FAERS Safety Report 7987217-4 (Version None)
Quarter: 2011Q4

REPORT INFORMATION
  Report Type: 
  Country: None (occurrence: None)
  Receive Date: 20111216
  Receipt Date: 20111203
  Transmission Date: 20120403
  Serious: Yes (Other)
  Sender: FDA-Public Use
  Company Number: PHHO2011JP17715

PATIENT
  Sex: Female

DRUGS (59)
  1. CYCLOSPORINE [Suspect]
     Indication: HISTIOCYTOSIS HAEMATOPHAGIC
     Dosage: 220 MG, QD
     Route: 048
     Dates: start: 20110129, end: 20110129
  2. CYCLOSPORINE [Suspect]
     Dosage: 100 MG, QD
     Route: 048
     Dates: start: 20110221, end: 20110221
  3. PREDNISOLONE [Suspect]
     Dosage: 20 MG, QD
     Route: 048
     Dates: start: 20110412, end: 20110427
  4. PREDNISOLONE [Suspect]
     Dosage: 70 MG, UNK
     Route: 048
     Dates: start: 20110531
  5. PREDNISOLONE [Suspect]
     Dosage: 60 MG, QD
     Route: 048
     Dates: start: 20110601, end: 20110621
  6. PREDNISOLONE [Suspect]
     Dosage: 30 MG, QD
     Route: 048
     Dates: start: 20110719, end: 20110726
  7. PREDNISOLONE [Suspect]
     Dosage: 27 MG, QD
     Route: 048
     Dates: start: 20110727, end: 20110807
  8. MAGMITT [Concomitant]
     Dosage: 330 MG, QD
     Route: 048
     Dates: start: 20110128
  9. DEPAKENE [Concomitant]
     Dosage: 700 MG, QD
     Route: 048
     Dates: start: 20110310, end: 20110313
  10. DEPAKENE [Concomitant]
     Dosage: 600 MG, QD
     Route: 048
     Dates: start: 20110313, end: 20110314
  11. VALTREX [Concomitant]
     Dosage: 3000 MG, QD
     Route: 048
     Dates: start: 20110615, end: 20110622
  12. PREDNISOLONE [Suspect]
     Dosage: 40 MG, QD
     Route: 048
     Dates: start: 20110221
  13. PREDNISOLONE [Suspect]
     Dosage: 25 MG, QD
     Route: 048
     Dates: start: 20110322, end: 20110411
  14. PREDNISOLONE [Suspect]
     Dosage: 20 MG, QD
     Route: 048
     Dates: start: 20110908
  15. BACTRIM [Concomitant]
     Dosage: 960 MG, 6 IN 1D
     Route: 048
  16. PEROSPIRONE HYDROCHLORIDE [Suspect]
  17. CYCLOSPORINE [Suspect]
     Dosage: 140 MG, QD
     Route: 048
     Dates: start: 20110131, end: 20110131
  18. PREDNISONE [Suspect]
     Dosage: 1 IN 1 D
     Route: 042
     Dates: start: 20110517
  19. PREDNISONE [Suspect]
     Dosage: 80 MG, QD
     Route: 042
     Dates: start: 20110522, end: 20110525
  20. FOSAMAX [Concomitant]
     Dosage: 35 MG, QD
     Route: 048
     Dates: start: 20110216
  21. OXYCONTIN [Concomitant]
     Dosage: 20 MG, QD
     Route: 048
     Dates: start: 20110609, end: 20110621
  22. PREDNISOLONE [Suspect]
     Dosage: 18 MG, QD
     Route: 048
     Dates: start: 20110428, end: 20110511
  23. PREDNISOLONE [Suspect]
     Dosage: 15 MG, QD
     Route: 048
     Dates: start: 20110512, end: 20110517
  24. PREDNISONE [Suspect]
     Dosage: 40 MG, QD
     Route: 042
     Dates: start: 20110521
  25. ONEALFA [Concomitant]
     Dosage: 0.5 MG, UNK
     Route: 048
  26. CEFAZOLIN SODIUM [Concomitant]
     Dosage: 3 MG, QD
     Route: 048
     Dates: start: 20110116
  27. CYCLOSPORINE [Suspect]
     Dosage: 50 MG, QD
     Route: 048
     Dates: start: 20110222, end: 20110314
  28. CYCLOSPORINE [Suspect]
     Dosage: 100 MG, QD
     Route: 048
     Dates: start: 20110601, end: 20110621
  29. PREDNISOLONE [Suspect]
     Dosage: 50 MG, QD
     Route: 048
     Dates: start: 20110110
  30. PREDNISOLONE [Suspect]
     Dosage: 50 MG, QD
     Route: 048
     Dates: start: 20110209, end: 20110220
  31. PREDNISOLONE [Suspect]
     Dosage: 35 MG, QD
     Route: 048
     Dates: start: 20110301, end: 20110307
  32. PREDNISOLONE [Suspect]
     Dosage: 40 MG, UNK
     Route: 048
     Dates: start: 20110701, end: 20110710
  33. PREDNISOLONE [Suspect]
     Dosage: 35 MG, QD
     Route: 048
     Dates: start: 20110711, end: 20110718
  34. TOCILIZUMAB [Suspect]
     Indication: JUVENILE ARTHRITIS
     Dosage: 280 MG,ONCE IN 2 WEEKS
     Route: 041
     Dates: start: 20110216, end: 20110404
  35. TOCILIZUMAB [Suspect]
     Dosage: 320 MG, ONCE IN 2 WEEKS
     Route: 041
     Dates: start: 20110823
  36. TOCILIZUMAB [Suspect]
     Dosage: 320 MG,ONCE IN 3 WEEKS
     Dates: start: 20110906
  37. FAMOTIDINE [Concomitant]
     Dosage: 40 MG, QD
     Route: 048
  38. DEPAKENE [Concomitant]
     Dosage: 800 MG, QD
     Route: 048
     Dates: start: 20110309
  39. TARGOCID [Concomitant]
     Dosage: 800 MG, QD
     Route: 042
     Dates: start: 20110601, end: 20110614
  40. WARFARIN SODIUM [Concomitant]
     Dosage: ONCE DAILY
     Dates: start: 20110617
  41. PREDNISOLONE [Suspect]
     Dosage: 25 MG, QD
     Route: 048
     Dates: start: 20110808, end: 20110817
  42. PREDNISOLONE [Suspect]
     Dosage: 23 MG, QD
     Route: 048
     Dates: start: 20110818, end: 20110829
  43. METHYLPREDNISOLONE [Suspect]
     Dosage: 1 IN 1 D
     Route: 042
     Dates: start: 20110518, end: 20110520
  44. TEGRETOL [Concomitant]
     Dosage: 50 MG, QD
     Route: 048
     Dates: start: 20110512, end: 20110905
  45. CYCLOSPORINE [Suspect]
     Dosage: 50 MG, UNK
     Route: 042
     Dates: start: 20110519, end: 20110531
  46. PREDNISOLONE [Suspect]
     Dosage: 30 MG, QD
     Route: 048
     Dates: start: 20110308, end: 20110321
  47. PREDNISOLONE [Suspect]
     Dosage: 50 MG, QD
     Route: 048
     Dates: start: 20110622, end: 20110627
  48. PREDNISOLONE [Suspect]
     Dosage: 45 MG, QD
     Route: 048
     Dates: start: 20110628, end: 20110630
  49. PREDNISOLONE [Suspect]
     Dosage: 21 MG, QD
     Route: 048
     Dates: start: 20110830, end: 20110907
  50. METHYLPREDNISOLONE [Suspect]
     Dosage: 1 IN 1 D
     Route: 042
     Dates: start: 20110107, end: 20110109
  51. METHYLPREDNISOLONE [Suspect]
     Dosage: 1 IN 1 D
     Route: 042
     Dates: start: 20110525, end: 20110527
  52. FLUCONAZOLE [Concomitant]
     Dosage: 200 MG, QD
     Route: 048
     Dates: start: 20110215
  53. FLURBIPROFEN [Concomitant]
     Dosage: 50 MG, QD
     Route: 042
     Dates: start: 20110531
  54. CYCLOSPORINE [Suspect]
     Dosage: 180 MG, QD
     Route: 048
     Dates: start: 20110130, end: 20110130
  55. CYCLOSPORINE [Suspect]
     Dosage: 25 MG, QD
     Route: 048
     Dates: start: 20110315, end: 20110317
  56. PREDNISONE [Suspect]
     Dosage: 1 IN 1 D
     Route: 042
     Dates: start: 20110528, end: 20110530
  57. METHYLPREDNISOLONE [Suspect]
     Dosage: 1 IN 1 D
     Route: 042
     Dates: start: 20101228, end: 20101229
  58. TOCILIZUMAB [Suspect]
     Dosage: 320 MG,ONCE IN 2 WEEKS
     Dates: start: 20110428, end: 20110512
  59. PENTAZOCINE LACTATE [Concomitant]
     Dosage: 15 MG, QD
     Route: 042
     Dates: start: 20110601

REACTIONS (3)
  - PNEUMONIA CYTOMEGALOVIRAL [None]
  - HISTIOCYTOSIS HAEMATOPHAGIC [None]
  - WHITE BLOOD CELL COUNT DECREASED [None]
